FAERS Safety Report 21172269 (Version 1)
Quarter: 2022Q3

REPORT INFORMATION
  Report Type: Spontaneous
  Country: US (occurrence: None)
  Receive Date: 20220803
  Receipt Date: 20220803
  Transmission Date: 20221026
  Serious: No
  Sender: FDA-Public Use
  Company Number: None

PATIENT
  Age: 47 Year
  Sex: Female

DRUGS (1)
  1. EVEROLIMUS [Suspect]
     Active Substance: EVEROLIMUS
     Dosage: FREQUENCY : DAILY;?
     Route: 048
     Dates: start: 202203

REACTIONS (2)
  - Cough [None]
  - Oxygen saturation decreased [None]

NARRATIVE: CASE EVENT DATE: 20220715
